FAERS Safety Report 8210118-3 (Version None)
Quarter: 2012Q1

REPORT INFORMATION
  Report Type: 
  Country: None (occurrence: None)
  Receive Date: 20120314
  Receipt Date: 20110823
  Transmission Date: 20120608
  Serious: No
  Sender: FDA-Public Use
  Company Number: US-ASTRAZENECA-2011SE50839

PATIENT
  Sex: Male

DRUGS (9)
  1. GLIMEPIRIDE [Concomitant]
  2. HYDROCODONE BITARTRATE AND ACETAMINOPHEN [Concomitant]
     Indication: PAIN
  3. LEVEMIR [Concomitant]
  4. METOPROLOL SUCCINATE [Suspect]
     Route: 048
  5. LEVOTHYROXINE SODIUM [Concomitant]
  6. ACTOS [Concomitant]
  7. TRICOR [Concomitant]
  8. UNIFINE PENTIPS [Concomitant]
  9. GEMFIBROZIL [Concomitant]

REACTIONS (1)
  - PAIN [None]
